FAERS Safety Report 11461366 (Version 1)
Quarter: 2015Q3

REPORT INFORMATION
  Report Type: Spontaneous
  Country: US (occurrence: US)
  Receive Date: 20150831
  Receipt Date: 20150831
  Transmission Date: 20151125
  Serious: Yes (Hospitalization)
  Sender: FDA-Public Use
  Company Number: US-ELI_LILLY_AND_COMPANY-US200912003746

PATIENT
  Age: 69 Year
  Sex: Male

DRUGS (3)
  1. BABY ASPIRIN [Concomitant]
     Active Substance: ASPIRIN
  2. VERAPAMIL [Concomitant]
     Active Substance: VERAPAMIL HYDROCHLORIDE
     Indication: HYPERTENSION
     Dates: end: 200912
  3. CYMBALTA [Suspect]
     Active Substance: DULOXETINE HYDROCHLORIDE
     Indication: DEPRESSION
     Dosage: 60 MG, DAILY (1/D)
     Dates: start: 20091201

REACTIONS (4)
  - Non-cardiac chest pain [Recovered/Resolved]
  - Anxiety [Recovered/Resolved]
  - Dizziness [Not Recovered/Not Resolved]
  - Orthostatic hypotension [Not Recovered/Not Resolved]

NARRATIVE: CASE EVENT DATE: 20091205
